FAERS Safety Report 21248865 (Version 3)
Quarter: 2022Q3

REPORT INFORMATION
  Report Type: Spontaneous
  Country: US (occurrence: US)
  Receive Date: 20220824
  Receipt Date: 20220919
  Transmission Date: 20221027
  Serious: Yes (Hospitalization)
  Sender: FDA-Public Use
  Company Number: US-ELI_LILLY_AND_COMPANY-US202208006710

PATIENT
  Age: 56 Year
  Sex: Female

DRUGS (2)
  1. HUMALOG [Suspect]
     Active Substance: INSULIN LISPRO
     Indication: Diabetes mellitus
     Dosage: 20 U, TID (20 UNITS PLUS A SLIDING SCALE AVERAGES TAKING HUMALOG 3 TIMES A DAY)
     Route: 058
  2. HUMALOG KWIKPEN [Suspect]
     Active Substance: INSULIN LISPRO
     Indication: Diabetes mellitus
     Dosage: 20 U, TID (20 UNITS PLUS A SLIDING SCALE AVERAGES TAKING HUMALOG 3 TIMES A DAY)
     Route: 058

REACTIONS (8)
  - Renal disorder [Recovering/Resolving]
  - Visual impairment [Recovering/Resolving]
  - Scar [Recovered/Resolved]
  - Fall [Recovering/Resolving]
  - Facial bones fracture [Recovering/Resolving]
  - Fat tissue increased [Recovering/Resolving]
  - Foot fracture [Recovering/Resolving]
  - Mental disorder [Not Recovered/Not Resolved]

NARRATIVE: CASE EVENT DATE: 20220519
